FAERS Safety Report 21481785 (Version 1)
Quarter: 2022Q4

REPORT INFORMATION
  Report Type: Report from Study
  Country: CA (occurrence: CA)
  Receive Date: 20221020
  Receipt Date: 20221020
  Transmission Date: 20230113
  Serious: Yes (Hospitalization)
  Sender: FDA-Public Use
  Company Number: CA-BEH-2022150457

PATIENT
  Age: 55 Year
  Sex: Female
  Weight: 77.1 kg

DRUGS (1)
  1. HIZENTRA [Suspect]
     Active Substance: HUMAN IMMUNOGLOBULIN G
     Indication: Primary immunodeficiency syndrome
     Dosage: 6 GRAM, QW
     Route: 065
     Dates: start: 20190417

REACTIONS (3)
  - Infection [Unknown]
  - No adverse event [Unknown]
  - Inappropriate schedule of product administration [Unknown]
